FAERS Safety Report 6174850-8 (Version None)
Quarter: 2009Q2

REPORT INFORMATION
  Report Type: 
  Country: None (occurrence: None)
  Receive Date: 20090430
  Receipt Date: 20081201
  Transmission Date: 20091009
  Serious: No
  Sender: FDA-Public Use
  Company Number: US-ASTRAZENECA-2008UW26689

PATIENT
  Age: 67 Year
  Sex: Male
  Weight: 134.7 kg

DRUGS (12)
  1. NEXIUM [Suspect]
     Indication: DYSPEPSIA
     Route: 048
     Dates: start: 20060101
  2. PLAVIX [Concomitant]
  3. LASIX [Concomitant]
     Dosage: 20-40 MG
  4. ACTOS [Concomitant]
  5. NEURONTIN [Concomitant]
  6. REGLAN [Concomitant]
  7. AMITRIPTLINE HYDROCHLORIDE TAB [Concomitant]
  8. FISH OIL [Concomitant]
  9. FLAXSEED OIL [Concomitant]
  10. LIPITOR [Concomitant]
  11. ZETIA [Concomitant]
  12. LANTUS [Concomitant]

REACTIONS (2)
  - DRUG ADMINISTRATION ERROR [None]
  - DYSPEPSIA [None]
